FAERS Safety Report 25660981 (Version 1)
Quarter: 2025Q3

REPORT INFORMATION
  Report Type: Other
  Country: EU (occurrence: US)
  Receive Date: 20250808
  Receipt Date: 20250808
  Transmission Date: 20251021
  Serious: Yes (Death, Other)
  Sender: ALVOGEN
  Company Number: EU-ALVOGEN-2025098462

PATIENT
  Age: 52 Year
  Sex: Male

DRUGS (3)
  1. DISULFIRAM [Suspect]
     Active Substance: DISULFIRAM
     Indication: Product used for unknown indication
     Route: 050
  2. ETHYL ALCOHOL [Suspect]
     Active Substance: ALCOHOL
     Indication: Alcoholism
  3. CITALOPRAM [Concomitant]
     Active Substance: CITALOPRAM
     Indication: Product used for unknown indication

REACTIONS (4)
  - Cardiotoxicity [Fatal]
  - Alcohol poisoning [Fatal]
  - Labelled drug-food interaction issue [Fatal]
  - Incorrect route of product administration [Unknown]
